FAERS Safety Report 16087629 (Version 1)
Quarter: 2019Q1

REPORT INFORMATION
  Report Type: Spontaneous
  Country: NL (occurrence: NL)
  Receive Date: 20190319
  Receipt Date: 20190319
  Transmission Date: 20190418
  Serious: Yes (Death, Hospitalization, Other)
  Sender: FDA-Public Use
  Company Number: NL-AUROBINDO-AUR-APL-2019-013462

PATIENT

DRUGS (1)
  1. AMIODARONE HCL 200MG TABLETS [Suspect]
     Active Substance: AMIODARONE HYDROCHLORIDE
     Indication: ATRIAL FIBRILLATION
     Dosage: 200 MILLIGRAM, ONCE A DAY, 1X PER DAG 1 TABLET
     Route: 065
     Dates: start: 2017, end: 201810

REACTIONS (2)
  - Hypoxia [Fatal]
  - Lung disorder [Fatal]
